FAERS Safety Report 8426767-3 (Version None)
Quarter: 2012Q2

REPORT INFORMATION
  Report Type: 
  Country: None (occurrence: None)
  Receive Date: 20120611
  Receipt Date: 20120604
  Transmission Date: 20120825
  Serious: Yes (Hospitalization)
  Sender: FDA-Public Use
  Company Number: PHHY2012FR048493

PATIENT
  Sex: Female

DRUGS (7)
  1. TENORMIN [Concomitant]
  2. DOCETAXEL [Suspect]
     Indication: BREAST CANCER
     Route: 042
     Dates: start: 20120410
  3. LEXOMIL [Concomitant]
  4. PREDNISONE TAB [Concomitant]
  5. RASILEZ [Suspect]
     Indication: HYPERTENSION
     Route: 048
  6. FENOFIBRATE [Concomitant]
  7. LERCANIDIPINE [Concomitant]

REACTIONS (9)
  - RENAL FAILURE ACUTE [None]
  - MOUTH ULCERATION [None]
  - ANAEMIA [None]
  - HYPOKALAEMIA [None]
  - DEHYDRATION [None]
  - VOMITING [None]
  - BLOOD CREATININE INCREASED [None]
  - GENERAL PHYSICAL HEALTH DETERIORATION [None]
  - DIARRHOEA [None]
